FAERS Safety Report 5710655-7 (Version None)
Quarter: 2008Q2

REPORT INFORMATION
  Report Type: 
  Country: None (occurrence: None)
  Receive Date: 20080415
  Receipt Date: 20080409
  Transmission Date: 20081010
  Serious: Yes (Death)
  Sender: FDA-Public Use
  Company Number: E2020-02591-SPO-JP

PATIENT
  Age: 77 Year
  Sex: Male
  Weight: 55 kg

DRUGS (2)
  1. ARICEPT [Suspect]
     Indication: DEMENTIA ALZHEIMER'S TYPE
     Dosage: 3 MG, 1 IN 1 D, ORAL, 5 MG, 1 IN 1 D, ORAL
     Route: 048
     Dates: start: 20071208, end: 20071221
  2. ARICEPT [Suspect]
     Indication: DEMENTIA ALZHEIMER'S TYPE
     Dosage: 3 MG, 1 IN 1 D, ORAL, 5 MG, 1 IN 1 D, ORAL
     Route: 048
     Dates: start: 20071222, end: 20080408

REACTIONS (4)
  - CARDIAC DISORDER [None]
  - DEMENTIA [None]
  - FEELING ABNORMAL [None]
  - SUDDEN DEATH [None]
